FAERS Safety Report 7408626-8 (Version None)
Quarter: 2011Q2

REPORT INFORMATION
  Report Type: 
  Country: None (occurrence: None)
  Receive Date: 20110412
  Receipt Date: 20110331
  Transmission Date: 20111010
  Serious: Yes (Other)
  Sender: FDA-Public Use
  Company Number: PHFR2011GB01975

PATIENT
  Sex: Male

DRUGS (1)
  1. CLOZARIL [Suspect]
     Indication: SCHIZOPHRENIA
     Dosage: 400 MG
     Route: 048
     Dates: start: 20090716

REACTIONS (5)
  - ANTIPSYCHOTIC DRUG LEVEL ABOVE THERAPEUTIC [None]
  - ELECTROCARDIOGRAM QT PROLONGED [None]
  - ORTHOSTATIC HYPOTENSION [None]
  - SUPRAVENTRICULAR EXTRASYSTOLES [None]
  - LOWER RESPIRATORY TRACT INFECTION [None]
